FAERS Safety Report 15567808 (Version 5)
Quarter: 2019Q2

REPORT INFORMATION
  Report Type: Report from Study
  Country: US (occurrence: US)
  Receive Date: 20181030
  Receipt Date: 20190603
  Transmission Date: 20190711
  Serious: Yes (Other)
  Sender: FDA-Public Use
  Company Number: US-TAKEDA-2018TUS031203

PATIENT
  Sex: Female

DRUGS (1)
  1. PONATINIB [Suspect]
     Active Substance: PONATINIB
     Indication: ACUTE LYMPHOCYTIC LEUKAEMIA
     Dosage: 45 MILLIGRAM, QD
     Route: 048
     Dates: start: 201810

REACTIONS (17)
  - Hyperglycaemia [Unknown]
  - Rash [Unknown]
  - Abdominal discomfort [Unknown]
  - Asthenia [Unknown]
  - Therapeutic product effect incomplete [Unknown]
  - Night sweats [Unknown]
  - Bone pain [Unknown]
  - Gastrooesophageal reflux disease [Unknown]
  - Headache [Unknown]
  - Rash macular [Unknown]
  - Constipation [Unknown]
  - Pneumonitis [Unknown]
  - Dry skin [Recovered/Resolved]
  - Neoplasm progression [Unknown]
  - Skin exfoliation [Recovered/Resolved]
  - Pyrexia [Unknown]
  - Weight decreased [Unknown]
